FAERS Safety Report 6968211-9 (Version None)
Quarter: 2010Q3

REPORT INFORMATION
  Report Type: 
  Country: None (occurrence: None)
  Receive Date: 20100907
  Receipt Date: 20100831
  Transmission Date: 20110219
  Serious: Yes (Hospitalization, Other)
  Sender: FDA-Public Use
  Company Number: US-JNJFOC-20100900943

PATIENT
  Sex: Male
  Weight: 127.01 kg

DRUGS (3)
  1. TYLENOL W/ CODEINE NO. 3 [Suspect]
     Indication: MIGRAINE
     Dosage: TYLENOL 3 WAS STARTED ONE MONTH AFTER STOPPING THE GENERIC PRODUCT
     Route: 048
  2. TYLENOL W/ CODEINE NO. 3 [Suspect]
     Route: 048
  3. ACETAMINOPHEN AND CODEINE PHOSPHATE [Suspect]
     Indication: MIGRAINE
     Route: 048

REACTIONS (10)
  - ACCIDENT [None]
  - AMNESIA [None]
  - DRUG INEFFECTIVE [None]
  - EYEBALL AVULSION [None]
  - FACIAL PAIN [None]
  - FRACTURE [None]
  - HEAD INJURY [None]
  - INJURY [None]
  - NECK PAIN [None]
  - RETINAL DETACHMENT [None]
